FAERS Safety Report 5579885-1 (Version None)
Quarter: 2008Q1

REPORT INFORMATION
  Report Type: 
  Country: None (occurrence: None)
  Receive Date: 20080102
  Receipt Date: 20071225
  Transmission Date: 20080703
  Serious: Yes (Other)
  Sender: FDA-Public Use
  Company Number: JP-PFIZER INC-2007107111

PATIENT
  Sex: Male

DRUGS (1)
  1. ESTRACYT [Suspect]
     Route: 048

REACTIONS (1)
  - PULMONARY FIBROSIS [None]
